FAERS Safety Report 17019738 (Version 1)
Quarter: 2019Q4

REPORT INFORMATION
  Report Type: Spontaneous
  Country: US (occurrence: US)
  Receive Date: 20191112
  Receipt Date: 20191112
  Transmission Date: 20200122
  Serious: Yes (Other)
  Sender: FDA-Public Use
  Company Number: US-BTG-201800339

PATIENT

DRUGS (2)
  1. CROFAB [Suspect]
     Active Substance: CROTALIDAE POLYVALENT IMMUNE FAB (OVINE)
     Indication: SNAKE BITE
  2. EPINEPHRINE. [Interacting]
     Active Substance: EPINEPHRINE
     Indication: HYPERSENSITIVITY

REACTIONS (1)
  - Hypersensitivity [Recovered/Resolved]
